FAERS Safety Report 8805065 (Version 1)
Quarter: 2012Q4

REPORT INFORMATION
  Report Type: Report from Study
  Country: None (occurrence: UA)
  Receive Date: 20120924
  Receipt Date: 20120924
  Transmission Date: 20130627
  Serious: Yes (Hospitalization)
  Sender: FDA-Public Use
  Company Number: UA-TEVA-360529ISR

PATIENT
  Age: 51 Year
  Sex: Male

DRUGS (13)
  1. CISPLATIN [Suspect]
     Indication: METASTATIC GASTRIC CANCER
     Dosage: 7.5429 Milligram Daily; Current cycle 8 started on 23/Aug/2012 (158.4 mg, 1 in 21 D)
     Route: 041
     Dates: start: 20120302, end: 20120823
  2. 5-FLUOROURACIL [Suspect]
     Indication: METASTATIC GASTRIC CANCER
     Dosage: Current cycle 8 started on 23/Aug/2012 (7920 mg,1 in 21 D)
     Route: 041
     Dates: start: 20120302, end: 20120823
  3. SORBIFER [Concomitant]
     Indication: ANAEMIA
     Dosage: AS NEEDED
     Dates: start: 20120215
  4. ESSENTIAL PHOSPHOLIPIDS (PHOSPHOLIPIDS) [Concomitant]
     Indication: PROPHYLAXIS
     Dates: start: 20120302
  5. NEUROBION [Concomitant]
     Indication: PROPHYLAXIS
     Dates: start: 20120302
  6. THYMALINUM [Concomitant]
     Indication: ASTHENIA
     Dates: start: 20120817, end: 20120822
  7. CLEMASTINE [Concomitant]
     Indication: PREMEDICATION
     Dates: start: 20120823, end: 20120823
  8. ONDANSETRON [Concomitant]
     Indication: PREMEDICATION
     Dates: start: 20120823, end: 20120823
  9. GLUCOSE SOLUTION  5% [Concomitant]
     Indication: PROPHYLAXIS AGAINST DEHYDRATION
     Dates: start: 20120823, end: 20120823
  10. NATRIUM CHLORIDE 0.9% (SODIUM CHLORIDE) [Concomitant]
     Indication: PROPHYLAXIS AGAINST DEHYDRATION
     Dates: start: 20120823, end: 20120823
  11. NATRIUM CHLORIDE 0.9% (SODIUM CHLORIDE) [Concomitant]
     Indication: INFUSION
  12. ASPARAGINAT(KALIUM-MAGNESIUM-ASPARAGINAT) [Concomitant]
     Indication: PROPHYLAXIS
     Dates: start: 20120823, end: 20120823
  13. LASIX [Concomitant]
     Indication: PROPHYLAXIS
     Dates: start: 20120823, end: 20120823

REACTIONS (1)
  - Gastric haemorrhage [Recovered/Resolved]
